FAERS Safety Report 4397142-6 (Version None)
Quarter: 2004Q3

REPORT INFORMATION
  Report Type: 
  Country: None (occurrence: None)
  Receive Date: 20040708
  Receipt Date: 20040623
  Transmission Date: 20050211
  Serious: Yes (Hospitalization)
  Sender: FDA-Public Use
  Company Number: PERI00204002116

PATIENT
  Age: 88 Year
  Sex: Female

DRUGS (5)
  1. COVERSYL (PERINDOPRIL) [Suspect]
     Indication: ESSENTIAL HYPERTENSION
     Dosage: 4 MG QD PO, 2 MG QD PO
     Route: 048
     Dates: end: 20040101
  2. LASIX [Suspect]
     Indication: ILL-DEFINED DISORDER
     Dosage: 40 MG DAILY, PO, DAILY PO
     Route: 048
     Dates: end: 20040101
  3. LASIX [Suspect]
     Indication: ILL-DEFINED DISORDER
     Dosage: 40 MG DAILY, PO, DAILY PO
     Route: 048
     Dates: start: 20040101
  4. TRINIPATCH (GLYCERYL TRINITRATE) [Concomitant]
  5. ADANCOR (NICORANDIL) [Concomitant]

REACTIONS (3)
  - CARDIOPULMONARY FAILURE [None]
  - HYPOKALAEMIA [None]
  - HYPONATRAEMIA [None]
